FAERS Safety Report 17223973 (Version 1)
Quarter: 2020Q1

REPORT INFORMATION
  Report Type: Spontaneous
  Country: FR (occurrence: FR)
  Receive Date: 20200102
  Receipt Date: 20200102
  Transmission Date: 20200409
  Serious: Yes (Other)
  Sender: FDA-Public Use
  Company Number: FR-GLAXOSMITHKLINE-FR2019236476

PATIENT
  Age: 45 Year
  Sex: Male
  Weight: 79.6 kg

DRUGS (2)
  1. ATROPINE. [Interacting]
     Active Substance: ATROPINE
     Indication: SALIVARY HYPERSECRETION
     Dosage: 3 GTT, QD
     Route: 060
     Dates: start: 20191015, end: 20191121
  2. SCOPODERM TTS [Suspect]
     Active Substance: SCOPOLAMINE
     Indication: SALIVARY HYPERSECRETION
     Dosage: 1 MG EVERY 72 HR
     Route: 060
     Dates: start: 20191008, end: 20191121

REACTIONS (3)
  - Mydriasis [Recovered/Resolved]
  - Urinary retention [Recovered/Resolved]
  - Drug interaction [Unknown]

NARRATIVE: CASE EVENT DATE: 2019
